FAERS Safety Report 15751565 (Version 2)
Quarter: 2023Q1

REPORT INFORMATION
  Report Type: Spontaneous
  Country: GB (occurrence: GB)
  Receive Date: 20181221
  Receipt Date: 20230327
  Transmission Date: 20230418
  Serious: Yes (Other)
  Sender: FDA-Public Use
  Company Number: GB-SAKK-2018SA387564AA

PATIENT
  Age: 40 Year
  Sex: Male

DRUGS (1)
  1. ALEMTUZUMAB [Suspect]
     Active Substance: ALEMTUZUMAB
     Indication: Relapsing-remitting multiple sclerosis
     Dosage: UNK
     Route: 041
     Dates: start: 2009, end: 2014

REACTIONS (4)
  - Endocrine ophthalmopathy [Unknown]
  - Eye pain [Unknown]
  - Exophthalmos [Unknown]
  - Basedow^s disease [Unknown]

NARRATIVE: CASE EVENT DATE: 20150101
